FAERS Safety Report 6106503-6 (Version None)
Quarter: 2009Q1

REPORT INFORMATION
  Report Type: 
  Country: None (occurrence: None)
  Receive Date: 20090306
  Receipt Date: 20090226
  Transmission Date: 20090719
  Serious: Yes (Other)
  Sender: FDA-Public Use
  Company Number: IT-AMGEN-UK335869

PATIENT
  Sex: Male
  Weight: 53 kg

DRUGS (2)
  1. VECTIBIX [Suspect]
     Indication: COLORECTAL CANCER
     Route: 042
     Dates: start: 20081105, end: 20090212
  2. CHLORPHENIRAMINE MALEATE [Concomitant]
     Dates: start: 20081105, end: 20090212

REACTIONS (2)
  - ERYTHEMA [None]
  - PSYCHOMOTOR HYPERACTIVITY [None]
